FAERS Safety Report 18507532 (Version 2)
Quarter: 2021Q1

REPORT INFORMATION
  Report Type: Spontaneous
  Country: US (occurrence: US)
  Receive Date: 20201116
  Receipt Date: 20210106
  Transmission Date: 20210419
  Serious: Yes (Other)
  Sender: FDA-Public Use
  Company Number: US-PFIZER INC-2020153020

PATIENT
  Age: 47 Year
  Sex: Male

DRUGS (2)
  1. CAVERJECT IMPULSE [Suspect]
     Active Substance: ALPROSTADIL
     Indication: ERECTILE DYSFUNCTION
     Dosage: 20 UG
  2. CAVERJECT IMPULSE [Suspect]
     Active Substance: ALPROSTADIL
     Dosage: 10 UG, AS NEEDED (10MCG, INJECTION IN TO PENILE SHAFT, THREE TIMES A WEEK, AND AS NEEDED)
     Dates: start: 2008

REACTIONS (3)
  - Priapism [Unknown]
  - Incorrect dose administered by device [Unknown]
  - Device issue [Unknown]
